FAERS Safety Report 9413390 (Version 1)
Quarter: 2013Q3

REPORT INFORMATION
  Report Type: Spontaneous
  Country: GB (occurrence: None)
  Receive Date: 20130717
  Receipt Date: 20130717
  Transmission Date: 20140515
  Serious: Yes (Hospitalization)
  Sender: FDA-Public Use
  Company Number: SYM-2013-05970

PATIENT
  Age: 33 Year
  Sex: Male

DRUGS (4)
  1. METRONIDAZOLE [Suspect]
     Indication: ORAL INFECTION
     Route: 048
     Dates: start: 20130607, end: 20130613
  2. AMOXICILLIN (AMOXICILLIN) (AMOXICILLIN) [Concomitant]
  3. PARACETAMOL (PARACETAMOL) (PARACETAMOL) [Concomitant]
  4. (CODEINE PHOSPHATE (CODEINE PHOOSPHATE) (CODEINE PHOSPHATE) [Concomitant]

REACTIONS (7)
  - Malaise [None]
  - Asthenia [None]
  - Chromaturia [None]
  - Neutropenia [None]
  - Platelet count decreased [None]
  - Liver function test abnormal [None]
  - Confusional state [None]
